FAERS Safety Report 4864927-9 (Version None)
Quarter: 2005Q4

REPORT INFORMATION
  Report Type: 
  Country: None (occurrence: None)
  Receive Date: 20051201
  Receipt Date: 20050802
  Transmission Date: 20060501
  Serious: No
  Sender: FDA-Public Use
  Company Number: 2005PV000731

PATIENT
  Age: 54 Year
  Sex: Male
  Weight: 87.5442 kg

DRUGS (8)
  1. BYETTA [Suspect]
     Indication: DIABETES MELLITUS NON-INSULIN-DEPENDENT
     Dosage: 5 MCG; BID; SC
     Route: 058
     Dates: start: 20050731
  2. LANTUS [Concomitant]
  3. GLUCOTROL [Concomitant]
  4. AVANDIA [Concomitant]
  5. VASOTEC [Concomitant]
  6. ASPIRIN [Concomitant]
  7. LIPITOR [Concomitant]
  8. LASIX [Concomitant]

REACTIONS (4)
  - DYSPEPSIA [None]
  - ERUCTATION [None]
  - HYPERHIDROSIS [None]
  - NAUSEA [None]
